FAERS Safety Report 19749131 (Version 1)
Quarter: 2021Q3

REPORT INFORMATION
  Report Type: Spontaneous
  Country: US (occurrence: US)
  Receive Date: 20210825
  Receipt Date: 20210825
  Transmission Date: 20211014
  Serious: No
  Sender: FDA-Public Use
  Company Number: None

PATIENT
  Age: 69 Year
  Sex: Female
  Weight: 94.95 kg

DRUGS (6)
  1. EXEMESTANE. [Suspect]
     Active Substance: EXEMESTANE
     Indication: BREAST CANCER
     Route: 048
     Dates: start: 20210728
  2. FOSAMAX [Concomitant]
     Active Substance: ALENDRONATE SODIUM
  3. CALCIUM D [Concomitant]
     Active Substance: CALCIUM\VITAMIN D
  4. LEVOTHYROXINE. [Concomitant]
     Active Substance: LEVOTHYROXINE
  5. OLMESARTAN [Concomitant]
     Active Substance: OLMESARTAN
  6. HYDROCHLOROTHIAZIDE. [Concomitant]
     Active Substance: HYDROCHLOROTHIAZIDE

REACTIONS (1)
  - Insomnia [None]

NARRATIVE: CASE EVENT DATE: 20210825
